FAERS Safety Report 7033774-4 (Version None)
Quarter: 2010Q4

REPORT INFORMATION
  Report Type: 
  Country: None (occurrence: None)
  Receive Date: 20101007
  Receipt Date: 20100927
  Transmission Date: 20110411
  Serious: Yes (Other)
  Sender: FDA-Public Use
  Company Number: PHHY2010JP60468

PATIENT
  Age: 55 Year
  Sex: Female

DRUGS (5)
  1. NEORAL [Suspect]
     Indication: PUSTULAR PSORIASIS
     Dosage: 400 MG, DAILY
     Route: 048
  2. NEORAL [Suspect]
     Indication: PSORIASIS
     Dosage: 175 MG, UNK
     Route: 048
  3. NEORAL [Suspect]
     Dosage: 150 MG, UNK
     Route: 048
  4. NEORAL [Suspect]
     Dosage: 100 MG, UNK
     Route: 048
  5. ETRETINATE [Concomitant]
     Indication: PUSTULAR PSORIASIS

REACTIONS (2)
  - BLOOD CREATININE ABNORMAL [None]
  - RENAL DISORDER [None]
